FAERS Safety Report 9697624 (Version 2)
Quarter: 2017Q2

REPORT INFORMATION
  Report Type: Spontaneous
  Country: US (occurrence: US)
  Receive Date: 20131120
  Receipt Date: 20170504
  Transmission Date: 20170830
  Serious: No
  Sender: FDA-Public Use
  Company Number: US-PFIZER INC-2013328541

PATIENT
  Age: 60 Year
  Sex: Male
  Weight: 84 kg

DRUGS (1)
  1. TIKOSYN [Suspect]
     Active Substance: DOFETILIDE
     Indication: ATRIAL FIBRILLATION
     Dosage: 500 UG, 2X/DAY
     Route: 048
     Dates: start: 201311

REACTIONS (2)
  - Vision blurred [Unknown]
  - Dizziness [Unknown]

NARRATIVE: CASE EVENT DATE: 201311
